FAERS Safety Report 7359842-5 (Version None)
Quarter: 2011Q1

REPORT INFORMATION
  Report Type: 
  Country: None (occurrence: None)
  Receive Date: 20110307
  Receipt Date: 20110222
  Transmission Date: 20110831
  Serious: Yes (Life-Threatening, Hospitalization)
  Sender: FDA-Public Use
  Company Number: DKLU1067689

PATIENT
  Age: 24 Day
  Sex: Male

DRUGS (9)
  1. PHENYTOIN [Concomitant]
  2. PHENYTOIN [Concomitant]
  3. DEPAKENE [Concomitant]
  4. SABRIL [Suspect]
     Indication: CONVULSION
     Dosage: 100 MG/KG MILLIGRAM(S)/KILOGRAM, 1 IN 1 D, ORAL 40 MG/KG MILLIGRAM(S)/KILOGRAM, 1 IN 1 D, ORAL
     Route: 048
     Dates: start: 20110108, end: 20110111
  5. SABRIL [Suspect]
     Indication: CONVULSION
     Dosage: 100 MG/KG MILLIGRAM(S)/KILOGRAM, 1 IN 1 D, ORAL 40 MG/KG MILLIGRAM(S)/KILOGRAM, 1 IN 1 D, ORAL
     Route: 048
     Dates: start: 20110114
  6. ALDACTONE [Concomitant]
  7. CODEINE (CODEINE) [Concomitant]
  8. RIVOTRIL (CLONAZEPAM) [Concomitant]
  9. GARDENAL (PHENOBARBITAL) [Concomitant]

REACTIONS (2)
  - HYPONATRAEMIA [None]
  - OVERDOSE [None]
